FAERS Safety Report 14191384 (Version 1)
Quarter: 2017Q4

REPORT INFORMATION
  Report Type: Spontaneous
  Country: AT (occurrence: AT)
  Receive Date: 20171115
  Receipt Date: 20171115
  Transmission Date: 20180321
  Serious: Yes (Hospitalization)
  Sender: FDA-Public Use
  Company Number: AT-PFIZER INC-2017485152

PATIENT
  Age: 57 Year
  Sex: Male

DRUGS (1)
  1. XANOR [Suspect]
     Active Substance: ALPRAZOLAM
     Dosage: 0.5 MG, 1X/DAY
     Route: 048
     Dates: start: 20170823, end: 20170823

REACTIONS (7)
  - Vomiting [Recovered/Resolved]
  - Dizziness [Recovered/Resolved]
  - Pruritus generalised [Recovered/Resolved]
  - Nausea [Recovered/Resolved]
  - Hyperventilation [Recovered/Resolved]
  - Panic attack [Recovered/Resolved]
  - Dyspnoea [Recovered/Resolved]

NARRATIVE: CASE EVENT DATE: 20170823
